FAERS Safety Report 8419559-2 (Version None)
Quarter: 2012Q2

REPORT INFORMATION
  Report Type: 
  Country: None (occurrence: None)
  Receive Date: 20120607
  Receipt Date: 20120529
  Transmission Date: 20120825
  Serious: Yes (Other)
  Sender: FDA-Public Use
  Company Number: US-ASTRAZENECA-2010SE32460

PATIENT
  Age: 64 Year
  Sex: Female

DRUGS (7)
  1. TOPROL-XL [Suspect]
     Route: 048
  2. LIPITOR [Suspect]
     Route: 065
  3. NEXIUM [Suspect]
     Route: 048
  4. SYMBICORT [Suspect]
     Indication: LUNG CARCINOMA CELL TYPE UNSPECIFIED STAGE IV
     Dosage: 160/4.5 MCG TWO PUFFS, TWO TIMES A DAY
     Route: 055
  5. CRESTOR [Suspect]
     Route: 048
  6. ARIMIDEX [Suspect]
     Route: 048
  7. METOPROLOL SUCCINATE [Suspect]
     Route: 048

REACTIONS (19)
  - DIABETIC EYE DISEASE [None]
  - EYE PAIN [None]
  - OFF LABEL USE [None]
  - LUNG NEOPLASM MALIGNANT [None]
  - PLEURAL EFFUSION [None]
  - PAIN IN EXTREMITY [None]
  - DRUG DOSE OMISSION [None]
  - DIABETES MELLITUS [None]
  - MEMORY IMPAIRMENT [None]
  - HYPERTENSION [None]
  - VISION BLURRED [None]
  - GINGIVAL BLISTER [None]
  - MALAISE [None]
  - MUSCLE SPASMS [None]
  - BREAST CANCER [None]
  - CANCER IN REMISSION [None]
  - BLOOD CHOLESTEROL INCREASED [None]
  - APHAGIA [None]
  - LACRIMATION INCREASED [None]
